FAERS Safety Report 6074513-3 (Version None)
Quarter: 2009Q1

REPORT INFORMATION
  Report Type: 
  Country: None (occurrence: None)
  Receive Date: 20090206
  Receipt Date: 20090120
  Transmission Date: 20090719
  Serious: Yes (Other)
  Sender: FDA-Public Use
  Company Number: 2009S1001084

PATIENT
  Age: 15 Year
  Sex: Male

DRUGS (3)
  1. METHOTREXATE [Suspect]
     Indication: ACUTE LYMPHOCYTIC LEUKAEMIA
     Dosage: INTRATHECAL ,INTRATHECAL
     Route: 037
  2. METHOTREXATE [Suspect]
     Dosage: INTRAVENOUS DRIP
     Route: 041
  3. CALCIUM FOLINATE [Concomitant]

REACTIONS (7)
  - CEREBRAL INFARCTION [None]
  - CEREBRAL ISCHAEMIA [None]
  - CRANIAL NEUROPATHY [None]
  - MOOD ALTERED [None]
  - NEUROTOXICITY [None]
  - PERIPHERAL MOTOR NEUROPATHY [None]
  - PYRAMIDAL TRACT SYNDROME [None]
